FAERS Safety Report 12450820 (Version 3)
Quarter: 2016Q3

REPORT INFORMATION
  Report Type: Report from Study
  Country: NL (occurrence: NL)
  Receive Date: 20160609
  Receipt Date: 20160710
  Transmission Date: 20161109
  Serious: Yes (Hospitalization, Other)
  Sender: FDA-Public Use
  Company Number: PHHY2016NL077219

PATIENT
  Age: 71 Year
  Sex: Female

DRUGS (2)
  1. ZOMETA [Suspect]
     Active Substance: ZOLEDRONIC ACID
     Indication: BREAST CANCER METASTATIC
     Dosage: 4 MG,/100 ML,  ONCE PER 26 WEEKS
     Route: 042
     Dates: start: 20141229
  2. LETROZOLE. [Concomitant]
     Active Substance: LETROZOLE
     Indication: PRODUCT USED FOR UNKNOWN INDICATION
     Route: 065

REACTIONS (5)
  - Breast cancer recurrent [Unknown]
  - Inappropriate schedule of drug administration [Unknown]
  - Metastases to lymph nodes [Unknown]
  - Lymphadenopathy [Recovered/Resolved]
  - Thrombosis [Recovering/Resolving]

NARRATIVE: CASE EVENT DATE: 20151216
